FAERS Safety Report 26205778 (Version 1)
Quarter: 2025Q4

REPORT INFORMATION
  Report Type: Report from Study
  Country: EU (occurrence: EU)
  Receive Date: 20251229
  Receipt Date: 20251229
  Transmission Date: 20260118
  Serious: Yes (Other)
  Sender: JOHNSON AND JOHNSON
  Company Number: EU-JNJFOC-20251228766

PATIENT
  Age: 21 Year
  Sex: Female
  Weight: 78 kg

DRUGS (3)
  1. GUSELKUMAB [Suspect]
     Active Substance: GUSELKUMAB
     Indication: Crohn^s disease
     Route: 042
     Dates: start: 20251020
  2. GUSELKUMAB [Suspect]
     Active Substance: GUSELKUMAB
     Route: 042
     Dates: start: 20251216, end: 20251216
  3. GUSELKUMAB [Suspect]
     Active Substance: GUSELKUMAB
     Route: 042
     Dates: start: 20251117

REACTIONS (1)
  - Infusion related reaction [Recovered/Resolved]

NARRATIVE: CASE EVENT DATE: 20251216
